FAERS Safety Report 6477400-1 (Version None)
Quarter: 2009Q4

REPORT INFORMATION
  Report Type: 
  Country: None (occurrence: None)
  Receive Date: 20091207
  Receipt Date: 20091116
  Transmission Date: 20100525
  Serious: Yes (Other)
  Sender: FDA-Public Use
  Company Number: GB-SANOFI-AVENTIS-200715852GDDC

PATIENT
  Sex: Female

DRUGS (3)
  1. LEFLUNOMIDE [Suspect]
     Indication: RHEUMATOID ARTHRITIS
     Dates: start: 20040415, end: 20050701
  2. PREDNISOLONE [Suspect]
     Indication: RHEUMATOID ARTHRITIS
     Dates: start: 20040404, end: 20060123
  3. PARACETAMOL [Suspect]
     Indication: PAIN
     Dates: end: 20060123

REACTIONS (4)
  - CARDIAC MURMUR [None]
  - CARDIAC VALVE DISEASE [None]
  - DRUG EXPOSURE DURING PREGNANCY [None]
  - PREMATURE BABY [None]
